FAERS Safety Report 8920994 (Version 2)
Quarter: 2013Q1

REPORT INFORMATION
  Report Type: Spontaneous
  Country: US (occurrence: US)
  Receive Date: 20121123
  Receipt Date: 20130312
  Transmission Date: 20140127
  Serious: No
  Sender: FDA-Public Use
  Company Number: US-009507513-1211USA006228

PATIENT
  Age: 23 None
  Sex: Female
  Weight: 65.31 kg

DRUGS (1)
  1. NUVARING [Suspect]
     Indication: CONTRACEPTION
     Dosage: 1 RING/EVERY 28 DAYS
     Route: 067
     Dates: start: 20070220

REACTIONS (4)
  - Fungal infection [Not Recovered/Not Resolved]
  - Device expulsion [Unknown]
  - Device breakage [Unknown]
  - Vulvovaginal discomfort [Not Recovered/Not Resolved]
